FAERS Safety Report 11375760 (Version 7)
Quarter: 2017Q1

REPORT INFORMATION
  Report Type: Spontaneous
  Country: US (occurrence: US)
  Receive Date: 20150813
  Receipt Date: 20170111
  Transmission Date: 20170428
  Serious: Yes (Hospitalization, Other)
  Sender: FDA-Public Use
  Company Number: US-GLAXOSMITHKLINE-US2015GSK115474

PATIENT
  Age: 72 Year
  Sex: Female

DRUGS (5)
  1. OXYGEN. [Concomitant]
     Active Substance: OXYGEN
  2. ADVAIR DISKUS [Suspect]
     Active Substance: FLUTICASONE PROPIONATE\SALMETEROL XINAFOATE
     Indication: DYSPNOEA
     Dosage: UNK
     Route: 055
     Dates: start: 2010
  3. ADVAIR DISKUS [Suspect]
     Active Substance: FLUTICASONE PROPIONATE\SALMETEROL XINAFOATE
     Indication: CHRONIC OBSTRUCTIVE PULMONARY DISEASE
  4. ADVAIR HFA [Suspect]
     Active Substance: FLUTICASONE PROPIONATE\SALMETEROL XINAFOATE
     Indication: BRONCHITIS
     Dosage: 230/21MCG UNK, U
  5. ADVAIR HFA [Suspect]
     Active Substance: FLUTICASONE PROPIONATE\SALMETEROL XINAFOATE
     Indication: ASTHMA
     Dosage: 45/21 MCG UNK, U

REACTIONS (26)
  - Feeding disorder [Not Recovered/Not Resolved]
  - Off label use [Unknown]
  - Candida infection [Unknown]
  - Dyspnoea [Unknown]
  - Expired product administered [Unknown]
  - Impaired gastric emptying [Not Recovered/Not Resolved]
  - Balance disorder [Unknown]
  - Pain [Not Recovered/Not Resolved]
  - Drug dose omission [Unknown]
  - Systemic candida [Unknown]
  - Asthenia [Unknown]
  - Skin abrasion [Unknown]
  - Gastric disorder [Unknown]
  - Intercepted medication error [Unknown]
  - Malaise [Unknown]
  - Joint fluid drainage [Unknown]
  - Wrong drug administered [Unknown]
  - Intentional underdose [Unknown]
  - Joint effusion [Unknown]
  - Oral candidiasis [Unknown]
  - Incorrect dose administered [Unknown]
  - Respiratory moniliasis [Unknown]
  - Loss of consciousness [Unknown]
  - Oesophageal candidiasis [Unknown]
  - Joint swelling [Unknown]
  - Sleep apnoea syndrome [Not Recovered/Not Resolved]

NARRATIVE: CASE EVENT DATE: 201512
